FAERS Safety Report 8463834-2 (Version None)
Quarter: 2012Q2

REPORT INFORMATION
  Report Type: 
  Country: None (occurrence: None)
  Receive Date: 20120625
  Receipt Date: 20120614
  Transmission Date: 20120825
  Serious: Yes (Other)
  Sender: FDA-Public Use
  Company Number: US-VERTEX PHARMACEUTICALS INC.-AE-2012-008978

PATIENT
  Sex: Male
  Weight: 81.72 kg

DRUGS (5)
  1. RIBAVIRIN [Concomitant]
     Indication: HEPATITIS C
  2. INCIVEK [Suspect]
     Indication: HEPATITIS C
     Route: 048
  3. DIOVAN [Concomitant]
  4. PEGASYS [Concomitant]
     Indication: HEPATITIS C
  5. TEMAZEPAM [Concomitant]

REACTIONS (5)
  - PAROSMIA [None]
  - DYSGEUSIA [None]
  - SYNCOPE [None]
  - ASTHENIA [None]
  - HYPOTENSION [None]
